FAERS Safety Report 5824532-4 (Version None)
Quarter: 2008Q3

REPORT INFORMATION
  Report Type: 
  Country: None (occurrence: None)
  Receive Date: 20080722
  Receipt Date: 20080714
  Transmission Date: 20090109
  Serious: Yes (Hospitalization)
  Sender: FDA-Public Use
  Company Number: 2008AL008211

PATIENT
  Age: 59 Year
  Sex: Male

DRUGS (3)
  1. PHENYTOIN [Suspect]
     Indication: EPILEPSY
     Dosage: 300 MG;QD
  2. OMEPRAZOLE [Concomitant]
  3. VITAMIN B COMPLEX [Concomitant]

REACTIONS (8)
  - ALCOHOL POISONING [None]
  - ATAXIA [None]
  - DEPRESSED LEVEL OF CONSCIOUSNESS [None]
  - DRUG TOXICITY [None]
  - DYSARTHRIA [None]
  - GAMMA-GLUTAMYLTRANSFERASE INCREASED [None]
  - MEAN CELL VOLUME INCREASED [None]
  - NYSTAGMUS [None]
